FAERS Safety Report 6617762-5 (Version None)
Quarter: 2010Q1

REPORT INFORMATION
  Report Type: 
  Country: None (occurrence: None)
  Receive Date: 20100308
  Receipt Date: 20100226
  Transmission Date: 20100710
  Serious: Yes (Other)
  Sender: FDA-Public Use
  Company Number: PHHY2009FR49765

PATIENT
  Sex: Female

DRUGS (2)
  1. EUCREAS [Suspect]
     Indication: TYPE 2 DIABETES MELLITUS
     Dosage: UNK/50 MG DAILY
     Route: 048
     Dates: start: 20091002, end: 20091005
  2. METFORMIN HYDROCHLORIDE [Concomitant]
     Dosage: 2 TABLETS/DAY
     Dates: start: 20020704

REACTIONS (6)
  - ASTHENIA [None]
  - BLOOD GLUCOSE INCREASED [None]
  - HEAD DISCOMFORT [None]
  - HEADACHE [None]
  - MALAISE [None]
  - TREMOR [None]
